FAERS Safety Report 6473781-3 (Version None)
Quarter: 2009Q4

REPORT INFORMATION
  Report Type: 
  Country: None (occurrence: None)
  Receive Date: 20091204
  Receipt Date: 20091125
  Transmission Date: 20100525
  Serious: Yes (Life-Threatening, Hospitalization, Other)
  Sender: FDA-Public Use
  Company Number: JP-JNJFOC-20090705217

PATIENT
  Sex: Female
  Weight: 58 kg

DRUGS (10)
  1. REMICADE [Suspect]
     Route: 042
     Dates: start: 20090710, end: 20090731
  2. REMICADE [Suspect]
     Indication: CROHN'S DISEASE
     Route: 042
     Dates: start: 20090710, end: 20090731
  3. IMURAN [Suspect]
     Indication: CROHN'S DISEASE
     Route: 048
  4. PREDNISOLONE [Suspect]
     Route: 048
  5. PREDNISOLONE [Suspect]
     Route: 048
  6. PREDNISOLONE [Suspect]
     Route: 048
  7. PREDNISOLONE [Suspect]
     Route: 048
  8. PREDNISOLONE [Suspect]
     Route: 048
  9. PREDNISOLONE [Suspect]
     Indication: CROHN'S DISEASE
     Route: 048
  10. HEPAFLUSH [Concomitant]
     Route: 042

REACTIONS (5)
  - DISSEMINATED INTRAVASCULAR COAGULATION [None]
  - HEADACHE [None]
  - NAUSEA [None]
  - SEPTIC SHOCK [None]
  - SERRATIA INFECTION [None]
